FAERS Safety Report 6911538-7 (Version None)
Quarter: 2010Q3

REPORT INFORMATION
  Report Type: 
  Country: None (occurrence: None)
  Receive Date: 20100806
  Receipt Date: 20100628
  Transmission Date: 20110219
  Serious: No
  Sender: FDA-Public Use
  Company Number: US-JNJFOC-20100501271

PATIENT
  Sex: Male
  Weight: 95.26 kg

DRUGS (6)
  1. INVEGA [Suspect]
     Indication: BIPOLAR DISORDER
     Route: 048
  2. HEROIN [Interacting]
     Indication: DRUG ABUSE
  3. LEXAPRO [Concomitant]
     Indication: DEPRESSION
  4. ABILIFY [Concomitant]
     Indication: DRUG THERAPY
  5. LAMICTAL [Concomitant]
     Indication: ANXIETY
  6. TRAZODONE [Concomitant]
     Indication: INSOMNIA

REACTIONS (3)
  - ANXIETY [None]
  - DRUG INTERACTION [None]
  - RESTLESSNESS [None]
